FAERS Safety Report 10916578 (Version 1)
Quarter: 2015Q1

REPORT INFORMATION
  Report Type: Spontaneous
  Country: ES (occurrence: None)
  Receive Date: 20150311
  Receipt Date: 20150311
  Transmission Date: 20150721
  Serious: Yes (Hospitalization)
  Sender: FDA-Public Use
  Company Number: DEP_02578_2015

PATIENT
  Age: 73 Year
  Sex: Male

DRUGS (10)
  1. IBUPROFEN. [Concomitant]
     Active Substance: IBUPROFEN
  2. BEVACIZUMAB [Suspect]
     Active Substance: BEVACIZUMAB
     Indication: COLORECTAL CANCER METASTATIC
     Dates: start: 20141103, end: 20141202
  3. FENTANYL. [Suspect]
     Active Substance: FENTANYL
     Indication: METASTASIS
     Dates: end: 20141202
  4. PECFENT [Suspect]
     Active Substance: FENTANYL CITRATE
     Indication: CANCER PAIN
     Dosage: 1 BOTTLE
  5. PARACETAMOL [Concomitant]
     Active Substance: ACETAMINOPHEN
  6. BLINDED INVESTIGATIONAL DRUG, UNSPECIFIED [Suspect]
     Active Substance: INVESTIGATIONAL PRODUCT
     Indication: COLORECTAL CANCER
     Dosage: BLINDED RO
     Dates: start: 20141103
  7. CALCIUM FOLINATE [Suspect]
     Active Substance: LEUCOVORIN CALCIUM
     Indication: COLORECTAL CANCER METASTATIC
     Dates: start: 20141103, end: 20141202
  8. FENTANYL. [Suspect]
     Active Substance: FENTANYL
     Indication: CANCER PAIN
     Dates: end: 20141202
  9. LORAZEPAM. [Concomitant]
     Active Substance: LORAZEPAM
  10. LISINOPRIL AND HYDROCHLOROTHIAZIDE [Concomitant]
     Active Substance: HYDROCHLOROTHIAZIDE\LISINOPRIL

REACTIONS (6)
  - Blood urea increased [None]
  - Disorientation [None]
  - Platelet count decreased [None]
  - Malaise [None]
  - Enterococcal bacteraemia [None]
  - Toxicity to various agents [None]

NARRATIVE: CASE EVENT DATE: 20141127
